FAERS Safety Report 9009154 (Version 2)
Quarter: 2013Q2

REPORT INFORMATION
  Report Type: Report from Study
  Country: US (occurrence: US)
  Receive Date: 20130111
  Receipt Date: 20130423
  Transmission Date: 20140414
  Serious: Yes (Hospitalization)
  Sender: FDA-Public Use
  Company Number: US-ROCHE-1176048

PATIENT
  Age: 55 Year
  Sex: Female
  Weight: 69.55 kg

DRUGS (6)
  1. BEVACIZUMAB [Suspect]
     Indication: FALLOPIAN TUBE CANCER
     Dosage: CYCLES 7-22
     Route: 042
     Dates: start: 20120731
  2. CISPLATIN [Suspect]
     Indication: FALLOPIAN TUBE CANCER
     Route: 033
     Dates: start: 20120731
  3. PACLITAXEL [Suspect]
     Indication: FALLOPIAN TUBE CANCER
     Route: 042
     Dates: start: 20120731
  4. PACLITAXEL [Suspect]
     Route: 033
  5. VELIPARIB [Suspect]
     Indication: FALLOPIAN TUBE CANCER
     Dosage: FOR CYCLES 1 AND 2-6
     Route: 048
     Dates: start: 20120731
  6. CIPROFLOXACIN [Suspect]
     Indication: PRODUCT USED FOR UNKNOWN INDICATION
     Route: 042
     Dates: start: 20121202

REACTIONS (10)
  - Abdominal pain [Recovered/Resolved]
  - Aspartate aminotransferase increased [Recovered/Resolved]
  - Alanine aminotransferase increased [Recovered/Resolved with Sequelae]
  - Hypomagnesaemia [Recovered/Resolved]
  - Hypokalaemia [Recovered/Resolved]
  - Hypocalcaemia [Recovered/Resolved]
  - Colitis [Recovered/Resolved]
  - Anaemia [Recovered/Resolved]
  - Febrile neutropenia [Recovered/Resolved]
  - Nausea [Recovered/Resolved]
